FAERS Safety Report 9566835 (Version 1)
Quarter: 2013Q3

REPORT INFORMATION
  Report Type: Spontaneous
  Country: US (occurrence: US)
  Receive Date: 20130930
  Receipt Date: 20130930
  Transmission Date: 20140515
  Serious: No
  Sender: FDA-Public Use
  Company Number: US-AMGEN-USASP2012069267

PATIENT
  Age: 60 Year
  Sex: Female

DRUGS (7)
  1. ENBREL [Suspect]
     Indication: PSORIATIC ARTHROPATHY
     Dosage: 50 MG/ML, QWK
     Route: 058
  2. METHOTREXATE [Concomitant]
     Dosage: 2.5 MG, UNK
  3. CALCIUM D                          /00944201/ [Concomitant]
     Dosage: UNK
  4. MAGNESIUM [Concomitant]
     Dosage: 300 MG, UNK
  5. METANX [Concomitant]
     Dosage: UNK
  6. TRAMADOL HCL [Concomitant]
     Dosage: 100 MG, UNK
  7. VITAMIN A                          /00056001/ [Concomitant]
     Dosage: UNK

REACTIONS (1)
  - Injection site rash [Unknown]
